FAERS Safety Report 10233583 (Version 1)
Quarter: 2014Q1

REPORT INFORMATION
  Report Type: Spontaneous
  Country: US (occurrence: None)
  Receive Date: 20140306
  Receipt Date: 20140306
  Transmission Date: 20141002
  Serious: Yes (Other)
  Sender: FDA-Public Use
  Company Number: 163-21880-13052796

PATIENT
  Age: 65 Year
  Sex: Male
  Weight: 67.13 kg

DRUGS (12)
  1. REVLIMID (LENALIDOMIDE) (25 MILLIGRAM, CAPSULES) [Suspect]
     Indication: PLASMA CELL MYELOMA
     Route: 048
     Dates: start: 200905
  2. ACYCLOVIR (ACICLOVIR) (TABLETS) [Concomitant]
  3. ASPIRINE (ACETYLSALICYLIC ACID) (ENTERIC-COATED TABLET) [Concomitant]
  4. BACTRIM (BACTRIM) (SULFAMETHOXAZOLE, TRIMETHOPRIM) [Concomitant]
  5. CALCIUM CITRATE (CALCIUM CITRATE) [Concomitant]
  6. FOLIC ACID (FOLIC ACID) [Concomitant]
  7. KYPROLIS (OTHER THERAPEUTIC PRODUCTS) [Concomitant]
  8. LIPITOR (ATORVASTATIN) [Concomitant]
  9. LYRICA (PREGABALIN) [Concomitant]
  10. MIRALAX (MACROGOL) [Concomitant]
  11. VITAMIN D (ERGOCALCIFEROL) [Concomitant]
  12. PREDNISONE (PREDNISONE) [Concomitant]

REACTIONS (1)
  - Cataract [None]
